FAERS Safety Report 15942139 (Version 1)
Quarter: 2019Q1

REPORT INFORMATION
  Report Type: Spontaneous
  Country: NL (occurrence: NL)
  Receive Date: 20190209
  Receipt Date: 20190209
  Transmission Date: 20190417
  Serious: Yes (Other)
  Sender: FDA-Public Use
  Company Number: NL-TEVA-2019-NL-1008223

PATIENT
  Age: 54 Year
  Sex: Female
  Weight: 63 kg

DRUGS (14)
  1. AMITRIPTYLINE TABLET 25MG (HCL) [Concomitant]
     Dosage: 2XD 1T
  2. GABAPENTINE CAPSULE 300MG [Concomitant]
     Dosage: 3XD 2C
  3. BETAHISTINE TABLET 16MG [Concomitant]
     Dosage: 2-3XD 1T
  4. AZATHIOPRINE TABLET 50MG [Concomitant]
     Dosage: 50 MILLIGRAM DAILY; 1XD 1T
  5. MEBEVERINE CAPSULE MGA 200MG [Concomitant]
     Dosage: 2XD 1C
  6. DEXTRAN 70/HYPROMELLOSE OOGDR 1/3MG/ML FL 15M [Concomitant]
     Dosage: 3XD 1 DROP
  7. GLATIRAMEER INJECTIEVLOEISTOF, 40 MG/ML (MILLIGRAM PER MILLILITER) [Suspect]
     Active Substance: GLATIRAMER ACETATE
     Indication: MULTIPLE SCLEROSIS
     Dosage: 3XW 1 INJECTION
     Dates: start: 20181022, end: 20181102
  8. OXYCODON TABLET MGA 10MG [Concomitant]
     Dosage: 2XD 1-2T
  9. LORAZEPAM TABLET 1MG [Concomitant]
     Active Substance: LORAZEPAM
     Dosage: 2XD 1T
  10. TIMOLOL/DORZOLAMID OOGDR 5/20MG/ML FL 5ML BENZ [Concomitant]
     Dosage: 2XD  1DROP
  11. PREDNISOLON OOGDR, SUSP 10MG/ML FL 5ML [Concomitant]
     Dosage: 1 GTT DAILY; 1XD 1 DROP
  12. CALCIUMCARBONAAT KAUWTABLET 1,25G (500MG CA) [Concomitant]
     Dosage: 1 DOSAGE FORMS DAILY; 1XD 1T
  13. MAGNESIUMHYDROXIDE KAUWTABLET 724MG [Concomitant]
     Dosage: 724 MILLIGRAM DAILY; 1XD 1
  14. PANTOPRAZOLE SODIUM. [Concomitant]
     Active Substance: PANTOPRAZOLE SODIUM
     Dosage: IF NECESSARY 1XD 1T

REACTIONS (8)
  - Malaise [Unknown]
  - Fatigue [Unknown]
  - Dizziness [Unknown]
  - Vomiting [Unknown]
  - Chills [Unknown]
  - Tremor [Unknown]
  - Syncope [Unknown]
  - Diarrhoea [Unknown]

NARRATIVE: CASE EVENT DATE: 20181029
